FAERS Safety Report 23699944 (Version 1)
Quarter: 2024Q2

REPORT INFORMATION
  Report Type: Spontaneous
  Country: US (occurrence: US)
  Receive Date: 20240403
  Receipt Date: 20240403
  Transmission Date: 20240716
  Serious: No
  Sender: FDA-Public Use
  Company Number: US-HALEON-USCH2024015862

PATIENT

DRUGS (1)
  1. GAS-X TOTAL RELIEF MAXIMUM STRENGTH [Suspect]
     Active Substance: CALCIUM CARBONATE\DIMETHICONE
     Indication: Gastrooesophageal reflux disease
     Dosage: UNK

REACTIONS (2)
  - Product use in unapproved indication [Unknown]
  - Drug effective for unapproved indication [Unknown]
